FAERS Safety Report 9915899 (Version 1)
Quarter: 2014Q1

REPORT INFORMATION
  Report Type: Spontaneous
  Country: US (occurrence: None)
  Receive Date: 20140219
  Receipt Date: 20140219
  Transmission Date: 20141002
  Serious: Yes (Other)
  Sender: FDA-Public Use
  Company Number: None

PATIENT
  Age: 50 Year
  Sex: Male
  Weight: 79.38 kg

DRUGS (1)
  1. DEXPAK [Suspect]
     Indication: INNER EAR DISORDER
     Route: 048

REACTIONS (2)
  - Hiccups [None]
  - Sleep disorder [None]
